FAERS Safety Report 9130477 (Version 2)
Quarter: 2013Q1

REPORT INFORMATION
  Report Type: Spontaneous
  Country: US (occurrence: US)
  Receive Date: 20130301
  Receipt Date: 20130318
  Transmission Date: 20140127
  Serious: Yes (Death, Other)
  Sender: FDA-Public Use
  Company Number: US-BIOGENIDEC-2013BI019313

PATIENT
  Age: 43 Year
  Sex: Male

DRUGS (1)
  1. TYSABRI [Suspect]
     Indication: MULTIPLE SCLEROSIS
     Route: 042
     Dates: start: 20120626, end: 20120626

REACTIONS (5)
  - Death [Fatal]
  - Convulsion [Recovered/Resolved]
  - Irritability [Recovered/Resolved]
  - Emotional distress [Recovered/Resolved]
  - Psychomotor hyperactivity [Recovered/Resolved]
